FAERS Safety Report 5838646-6 (Version None)
Quarter: 2008Q3

REPORT INFORMATION
  Report Type: 
  Country: None (occurrence: None)
  Receive Date: 20080808
  Receipt Date: 20080724
  Transmission Date: 20090109
  Serious: Yes (Hospitalization)
  Sender: FDA-Public Use
  Company Number: JP-GENENTECH-264056

PATIENT
  Sex: Female
  Weight: 52.5 kg

DRUGS (7)
  1. RANIBIZUMAB [Suspect]
     Indication: MACULAR DEGENERATION
     Dosage: 500 A?G, QD
     Route: 031
     Dates: start: 20060530
  2. LEVOFLOXACIN [Concomitant]
     Indication: DRUG USE FOR UNKNOWN INDICATION
  3. NILVADIPINE [Concomitant]
     Indication: DRUG USE FOR UNKNOWN INDICATION
  4. POLARAMINE [Concomitant]
     Indication: DRUG USE FOR UNKNOWN INDICATION
  5. HALCION [Concomitant]
     Indication: DRUG USE FOR UNKNOWN INDICATION
  6. DIAZEPAM [Concomitant]
     Indication: DRUG USE FOR UNKNOWN INDICATION
  7. BEZATOL [Concomitant]
     Indication: DRUG USE FOR UNKNOWN INDICATION

REACTIONS (4)
  - GASTRIC CANCER [None]
  - LUNG NEOPLASM MALIGNANT [None]
  - PYREXIA [None]
  - RASH [None]
